FAERS Safety Report 4640575-0 (Version None)
Quarter: 2005Q2

REPORT INFORMATION
  Report Type: 
  Country: None (occurrence: None)
  Receive Date: 20050420
  Receipt Date: 20050411
  Transmission Date: 20051028
  Serious: Yes (Other)
  Sender: FDA-Public Use
  Company Number: AU-BRISTOL-MYERS SQUIBB COMPANY-12928073

PATIENT
  Sex: Male

DRUGS (3)
  1. AVAPRO [Suspect]
     Indication: BLOOD PRESSURE
     Route: 048
     Dates: end: 20050409
  2. TAMBOCOR [Concomitant]
     Indication: CARDIAC FLUTTER
     Route: 048
  3. METHOTREXATE [Concomitant]
     Route: 048

REACTIONS (4)
  - ARTHRITIS [None]
  - POLYMYALGIA RHEUMATICA [None]
  - PROSTATIC SPECIFIC ANTIGEN INCREASED [None]
  - URINARY TRACT DISORDER [None]
